FAERS Safety Report 9871331 (Version 2)
Quarter: 2014Q1

REPORT INFORMATION
  Report Type: Spontaneous
  Country: FR (occurrence: FR)
  Receive Date: 20140205
  Receipt Date: 20140217
  Transmission Date: 20141002
  Serious: Yes (Hospitalization)
  Sender: FDA-Public Use
  Company Number: PHHY2014FR013405

PATIENT
  Age: 86 Year
  Sex: Female

DRUGS (6)
  1. TRAMADOL+PARACETAMOL [Suspect]
  2. CANDESARTAN CILEXETIL [Suspect]
     Dosage: 16 MG, PER DAY
  3. DABIGATRAN ETEXILATE [Suspect]
     Dosage: 110 MG, UNK
  4. FLECAINIDE [Concomitant]
     Dosage: 100 MG, PER DAY
  5. LERCANIDIPINE [Concomitant]
     Dosage: 10 MG, DAILY
  6. PROPRANOLOL [Concomitant]
     Dosage: 20 MG, BID

REACTIONS (3)
  - Hepatocellular injury [Recovered/Resolved]
  - Jaundice [Recovered/Resolved]
  - Renal failure acute [Recovered/Resolved]
